FAERS Safety Report 21085685 (Version 1)
Quarter: 2022Q3

REPORT INFORMATION
  Report Type: Other
  Country: US (occurrence: None)
  Receive Date: 20220715
  Receipt Date: 20220715
  Transmission Date: 20221026
  Serious: Yes (Other)
  Sender: FDA-Public Use
  Company Number: US-ROCHE-3136213

PATIENT
  Sex: Female

DRUGS (3)
  1. XELODA [Suspect]
     Active Substance: CAPECITABINE
     Indication: Breast cancer metastatic
     Dosage: TAKE 2 TABLETS BY MOUTH TWICE DAILY FOR 14 DAYS FOLLOWED BY 7 DAYS OFF, REPEAT CYCLE
     Route: 048
  2. AVASTIN [Suspect]
     Active Substance: BEVACIZUMAB
     Indication: Breast cancer metastatic
     Dosage: INFUSE 1370 MG INTRAVENOUSLY EVERY 21 DAS, FORMULATION : VIAL
     Route: 042
  3. AVASTIN [Suspect]
     Active Substance: BEVACIZUMAB
     Dosage: INFUSE 1370MG INTRAVENOUSLY EVERY 21 DAYS
     Route: 042

REACTIONS (2)
  - Recurrent cancer [Unknown]
  - Off label use [Unknown]
